FAERS Safety Report 5048796-2 (Version None)
Quarter: 2006Q3

REPORT INFORMATION
  Report Type: 
  Country: None (occurrence: None)
  Receive Date: 20060706
  Receipt Date: 20060620
  Transmission Date: 20061208
  Serious: Yes (Other)
  Sender: FDA-Public Use
  Company Number: 2006RR-02744

PATIENT
  Sex: Female

DRUGS (1)
  1. FLUCONAZOLE [Suspect]
     Indication: CANDIDIASIS
     Dosage: 150 MG, ORAL
     Route: 048
     Dates: start: 20060515, end: 20060515

REACTIONS (8)
  - ERYTHEMA [None]
  - PARAESTHESIA [None]
  - PHARYNGEAL OEDEMA [None]
  - PRURITUS [None]
  - RASH MACULAR [None]
  - SINUS CONGESTION [None]
  - SINUS DISORDER [None]
  - SWELLING [None]
